FAERS Safety Report 12434305 (Version 1)
Quarter: 2016Q2

REPORT INFORMATION
  Report Type: Report from Study
  Country: GB (occurrence: GB)
  Receive Date: 20160603
  Receipt Date: 20160603
  Transmission Date: 20160815
  Serious: Yes (Other)
  Sender: FDA-Public Use
  Company Number: GB-BRISTOL-MYERS SQUIBB COMPANY-BMS-2015-085777

PATIENT
  Age: 61 Year
  Sex: Female

DRUGS (2)
  1. IPILIMUMAB [Suspect]
     Active Substance: IPILIMUMAB
     Indication: METASTATIC MALIGNANT MELANOMA
     Dosage: 3 MG/KG, UNK
     Route: 042
     Dates: start: 20151117
  2. IPILIMUMAB [Suspect]
     Active Substance: IPILIMUMAB
     Dosage: UNK
     Route: 042
     Dates: start: 20151117

REACTIONS (12)
  - Abdominal pain [Recovering/Resolving]
  - Oral pain [Unknown]
  - Abdominal distension [Recovering/Resolving]
  - Dyspepsia [Unknown]
  - Mass [Unknown]
  - Fatigue [Unknown]
  - Eye pain [Unknown]
  - Diarrhoea [Unknown]
  - Ocular hyperaemia [Unknown]
  - Nausea [Recovering/Resolving]
  - Lymphoedema [Unknown]
  - Pulmonary mass [Unknown]

NARRATIVE: CASE EVENT DATE: 20151205
